FAERS Safety Report 8850457 (Version 4)
Quarter: 2012Q4

REPORT INFORMATION
  Report Type: 
  Country: CL (occurrence: CL)
  Receive Date: 20121019
  Receipt Date: 20121218
  Transmission Date: 20130627
  Serious: Yes (Other)
  Sender: FDA-Public Use
  Company Number: CL-PFIZER INC-2012260734

PATIENT
  Age: 39 Year
  Sex: Female

DRUGS (4)
  1. CHAMPIX [Suspect]
     Indication: SMOKING CESSATION THERAPY
     Dosage: 1 mg, 2x/day
     Route: 048
     Dates: start: 20120924, end: 20120930
  2. CHAMPIX [Suspect]
     Dosage: 1 mg, daily
     Route: 048
     Dates: start: 20121001, end: 201210
  3. CHAMPIX [Suspect]
     Dosage: half tablet in the morning and half tablet at night, 2x/day
     Route: 048
     Dates: start: 201210
  4. NEO-SINTROM [Concomitant]
     Dosage: UNK

REACTIONS (17)
  - Dyspnoea [Recovered/Resolved]
  - Suffocation feeling [Recovered/Resolved]
  - Syncope [Recovered/Resolved]
  - Anxiety [Recovered/Resolved]
  - Tachycardia [Recovered/Resolved]
  - Tremor [Recovered/Resolved]
  - Feeling abnormal [Recovered/Resolved]
  - Mental disorder [Recovered/Resolved]
  - Activities of daily living impaired [Recovered/Resolved]
  - Ear discomfort [Recovered/Resolved]
  - Nausea [Recovered/Resolved]
  - Asthenia [Recovered/Resolved]
  - Fatigue [Recovered/Resolved]
  - Gastritis [Recovered/Resolved]
  - Flatulence [Recovered/Resolved]
  - Constipation [Recovered/Resolved]
  - Menorrhagia [Recovered/Resolved]
